FAERS Safety Report 5425926-1 (Version None)
Quarter: 2007Q3

REPORT INFORMATION
  Report Type: 
  Country: None (occurrence: None)
  Receive Date: 20070827
  Receipt Date: 20070823
  Transmission Date: 20080115
  Serious: Yes (Life-Threatening)
  Sender: FDA-Public Use
  Company Number: JP-BRISTOL-MYERS SQUIBB COMPANY-13888383

PATIENT
  Age: 62 Year
  Sex: Female

DRUGS (1)
  1. TAXOL [Suspect]
     Indication: MALIGNANT MESENTERIC NEOPLASM
     Route: 041
     Dates: start: 20070811, end: 20070811

REACTIONS (1)
  - SHOCK [None]
